FAERS Safety Report 7192854-3 (Version None)
Quarter: 2010Q4

REPORT INFORMATION
  Report Type: 
  Country: None (occurrence: None)
  Receive Date: 20101223
  Receipt Date: 20101220
  Transmission Date: 20110411
  Serious: Yes (Life-Threatening, Hospitalization, Other)
  Sender: FDA-Public Use
  Company Number: US-US-EMD SERONO, INC.-7032983

PATIENT
  Sex: Female

DRUGS (3)
  1. REBIF [Suspect]
     Indication: MULTIPLE SCLEROSIS
     Route: 058
     Dates: start: 20070903
  2. IMMUNE GLOBULIN INTRAVENOUS (HUMAN) [Concomitant]
     Dates: end: 20100501
  3. INSULIN [Concomitant]
     Indication: TYPE 1 DIABETES MELLITUS

REACTIONS (14)
  - ASTHENIA [None]
  - BLOOD GLUCOSE FLUCTUATION [None]
  - CARDIOMEGALY [None]
  - CHOLELITHIASIS [None]
  - COLLAPSE OF LUNG [None]
  - GALLBLADDER PERFORATION [None]
  - HYPOAESTHESIA [None]
  - INFLUENZA [None]
  - MUSCULAR WEAKNESS [None]
  - PARAESTHESIA [None]
  - PULMONARY HYPERTENSION [None]
  - PYREXIA [None]
  - TRANSIENT ISCHAEMIC ATTACK [None]
  - UPPER RESPIRATORY TRACT INFECTION [None]
